FAERS Safety Report 23451814 (Version 7)
Quarter: 2024Q4

REPORT INFORMATION
  Report Type: Spontaneous
  Country: US (occurrence: US)
  Receive Date: 20240129
  Receipt Date: 20241110
  Transmission Date: 20250114
  Serious: No
  Sender: SANOFI AVENTIS
  Company Number: US-SA-SAC20240125000112

PATIENT
  Age: 47 Year
  Sex: Female

DRUGS (2)
  1. DUPIXENT [Suspect]
     Active Substance: DUPILUMAB
     Indication: Eosinophilic oesophagitis
     Dosage: 300 MG, QW
     Route: 058
     Dates: start: 202312, end: 2024
  2. DUPIXENT [Suspect]
     Active Substance: DUPILUMAB
     Dosage: 300 MG, QW
     Route: 058
     Dates: start: 20240711

REACTIONS (10)
  - Blister [Recovered/Resolved]
  - Lip blister [Recovered/Resolved]
  - Influenza like illness [Not Recovered/Not Resolved]
  - Flatulence [Unknown]
  - Arthralgia [Not Recovered/Not Resolved]
  - Oral herpes [Recovered/Resolved]
  - Rash [Recovered/Resolved]
  - Injection site pain [Unknown]
  - Eosinophilic oesophagitis [Unknown]
  - Eating disorder [Unknown]

NARRATIVE: CASE EVENT DATE: 20240101
